FAERS Safety Report 6968239-9 (Version None)
Quarter: 2010Q3

REPORT INFORMATION
  Report Type: 
  Country: None (occurrence: None)
  Receive Date: 20100907
  Receipt Date: 20100827
  Transmission Date: 20110219
  Serious: No
  Sender: FDA-Public Use
  Company Number: JP-ROCHE-708307

PATIENT
  Sex: Female
  Weight: 44 kg

DRUGS (6)
  1. AVASTIN [Suspect]
     Indication: COLON CANCER
     Route: 042
     Dates: start: 20100113
  2. AVASTIN [Suspect]
     Route: 042
     Dates: start: 20100210, end: 20100519
  3. CAMPTOSAR [Suspect]
     Indication: LARGE INTESTINE CARCINOMA
     Route: 041
     Dates: start: 20100113
  4. LEUCOVORIN CALCIUM [Concomitant]
     Dosage: DOSAGE WAS UNCERTAIN.
     Route: 042
  5. FLUOROURACIL [Concomitant]
     Dosage: ROUTE: INTRAVENOUS DRIP.  DOSAGE WAS UNCERTAIN.
     Route: 042
  6. FLUOROURACIL [Concomitant]
     Dosage: ROUTE: INTRAVENOUS BOLUS. DOSAGE WAS UNCERTAIN.
     Route: 042

REACTIONS (1)
  - REVERSIBLE POSTERIOR LEUKOENCEPHALOPATHY SYNDROME [None]
